FAERS Safety Report 7782012-3 (Version None)
Quarter: 2011Q3

REPORT INFORMATION
  Report Type: 
  Country: None (occurrence: None)
  Receive Date: 20110927
  Receipt Date: 20110920
  Transmission Date: 20111222
  Serious: Yes (Hospitalization)
  Sender: FDA-Public Use
  Company Number: PHEH2011US04924

PATIENT
  Sex: Female

DRUGS (11)
  1. CORGARD [Concomitant]
     Dosage: UNK UKN, UNK
  2. MUCINEX [Concomitant]
     Dosage: UNK UKN, UNK
  3. FLONASE [Concomitant]
     Dosage: UNK UKN, UNK
  4. RECLAST [Suspect]
     Indication: PATHOLOGICAL FRACTURE
     Dosage: 5 MG/100 ONCE PER YEAR
     Route: 042
     Dates: start: 20110113
  5. NUCYNTA [Concomitant]
     Dosage: UNK UKN, UNK
  6. ZANTAC [Concomitant]
     Dosage: UNK UKN, UNK
  7. MILK OF MAGNESIA TAB [Concomitant]
     Dosage: UNK UKN, UNK
  8. VITAMIN D [Concomitant]
     Dosage: UNK UKN, UNK
  9. VOLTAREN  TOPICAL GEL [Concomitant]
     Dosage: UNK UKN, UNK
  10. FISH OIL [Concomitant]
     Dosage: UNK UKN, UNK
  11. ZESTRIL [Concomitant]
     Dosage: 10 MG DAILY

REACTIONS (1)
  - MYOCARDIAL INFARCTION [None]
